FAERS Safety Report 9695643 (Version 1)
Quarter: 2013Q4

REPORT INFORMATION
  Report Type: Spontaneous
  Country: US (occurrence: None)
  Receive Date: 20131118
  Receipt Date: 20131118
  Transmission Date: 20140711
  Serious: Yes (Hospitalization)
  Sender: FDA-Public Use
  Company Number: None

PATIENT
  Age: 65 Year
  Sex: Male
  Weight: 98.2 kg

DRUGS (1)
  1. MINOXIDIL [Suspect]
     Indication: HYPERTENSION
     Route: 048
     Dates: start: 20130419, end: 20130415

REACTIONS (4)
  - Pericardial effusion [None]
  - Oedema peripheral [None]
  - Fluid overload [None]
  - Weight increased [None]
